FAERS Safety Report 9438532 (Version 1)
Quarter: 2013Q3

REPORT INFORMATION
  Report Type: Spontaneous
  Country: CA (occurrence: CA)
  Receive Date: 20130802
  Receipt Date: 20130802
  Transmission Date: 20140515
  Serious: Yes (Other)
  Sender: FDA-Public Use
  Company Number: CA-GLAXOSMITHKLINE-A1034704A

PATIENT
  Age: 61 Year
  Sex: Female
  Weight: 79.1 kg

DRUGS (18)
  1. ADVAIR [Suspect]
     Indication: CHRONIC OBSTRUCTIVE PULMONARY DISEASE
     Dosage: 1PUFF TWICE PER DAY
     Route: 055
     Dates: start: 201304
  2. VENTOLIN [Concomitant]
  3. ATROVENT [Concomitant]
     Dosage: 2PUFF FOUR TIMES PER DAY
  4. ATENOLOL [Concomitant]
     Dosage: 25MG PER DAY
  5. CODEINE [Concomitant]
     Dosage: 50MG TWICE PER DAY
  6. GABAPENTIN [Concomitant]
     Dosage: 600MG THREE TIMES PER DAY
  7. AMIODARONE [Concomitant]
     Dosage: .5TAB PER DAY
  8. ELAVIL [Concomitant]
     Dosage: 25MG TWICE PER DAY
  9. PANTOPRAZOLE MAGNESIUM [Concomitant]
     Dosage: 40MG PER DAY
  10. HYDROCHLOROTHIAZIDE [Concomitant]
     Dosage: 12.5MG PER DAY
  11. ASA [Concomitant]
     Dosage: 81MG PER DAY
  12. PALAFER [Concomitant]
     Dosage: 300MG PER DAY
  13. CRESTOR [Concomitant]
     Dosage: .5TAB PER DAY
  14. SYNTHROID [Concomitant]
     Dosage: 75MCG PER DAY
  15. ATIVAN [Concomitant]
     Dosage: .5MG TWICE PER DAY
  16. SUCRALFATE [Concomitant]
     Dosage: 1G TWICE PER DAY
  17. DOMPERIDONE [Concomitant]
     Dosage: 10MG THREE TIMES PER DAY
  18. SENOKOT [Concomitant]

REACTIONS (1)
  - Lung infection [Recovering/Resolving]
